FAERS Safety Report 17720302 (Version 1)
Quarter: 2020Q2

REPORT INFORMATION
  Report Type: Spontaneous
  Country: AU (occurrence: AU)
  Receive Date: 20200428
  Receipt Date: 20200428
  Transmission Date: 20200714
  Serious: Yes (Hospitalization, Other)
  Sender: FDA-Public Use
  Company Number: NVSC2020AU112663

PATIENT
  Age: 81 Year
  Sex: Male

DRUGS (2)
  1. RIVAROXABAN [Concomitant]
     Active Substance: RIVAROXABAN
     Indication: ATRIAL THROMBOSIS
     Dosage: UNK
     Route: 065
  2. AMIODARONE [Suspect]
     Active Substance: AMIODARONE
     Indication: ATRIAL FIBRILLATION
     Dosage: UNK
     Route: 065

REACTIONS (15)
  - Angioedema [Unknown]
  - Arthralgia [Recovered/Resolved]
  - Transaminases increased [Unknown]
  - Anaphylactic reaction [Unknown]
  - Urticaria [Unknown]
  - Pyrexia [Recovered/Resolved]
  - Purpura [Recovered/Resolved]
  - Exfoliative rash [Unknown]
  - Hypocomplementaemia [Unknown]
  - Wheezing [Unknown]
  - Type III immune complex mediated reaction [Unknown]
  - Type IV hypersensitivity reaction [Unknown]
  - Chest pain [Unknown]
  - Dermatitis exfoliative generalised [Unknown]
  - Lymphadenopathy [Unknown]
